FAERS Safety Report 7220324-2 (Version None)
Quarter: 2011Q1

REPORT INFORMATION
  Report Type: 
  Country: None (occurrence: None)
  Receive Date: 20110111
  Receipt Date: 20110111
  Transmission Date: 20110831
  Serious: Yes (Life-Threatening)
  Sender: FDA-Public Use
  Company Number: US-EISAI INC.-E2020-08208-SPO-US

PATIENT
  Sex: Female

DRUGS (1)
  1. ARICEPT [Suspect]
     Dosage: UNKNOWN
     Route: 048

REACTIONS (1)
  - CEREBRAL HAEMORRHAGE [None]
